FAERS Safety Report 6592919-0 (Version None)
Quarter: 2010Q1

REPORT INFORMATION
  Report Type: 
  Country: None (occurrence: None)
  Receive Date: 20100212
  Receipt Date: 20100204
  Transmission Date: 20100710
  Serious: Yes (Other)
  Sender: FDA-Public Use
  Company Number: CERZ-1001077

PATIENT
  Age: 51 Year
  Sex: Female
  Weight: 50 kg

DRUGS (3)
  1. CEREZYME [Suspect]
     Indication: GAUCHER'S DISEASE
     Dosage: 1800 U, Q4W, INTRAVENOUS
     Route: 042
     Dates: end: 20090922
  2. PENICILLIN (BENZYLPENICILLIN) [Concomitant]
  3. CALCICHEW (CALCIUM CARBONATE) [Concomitant]

REACTIONS (3)
  - DYSPNOEA [None]
  - OSTEONECROSIS [None]
  - THORACIC VERTEBRAL FRACTURE [None]
